FAERS Safety Report 16062561 (Version 1)
Quarter: 2019Q1

REPORT INFORMATION
  Report Type: Spontaneous
  Country: DE (occurrence: DE)
  Receive Date: 20190312
  Receipt Date: 20190312
  Transmission Date: 20190418
  Serious: Yes (Hospitalization)
  Sender: FDA-Public Use
  Company Number: PHHY2019DE039560

PATIENT
  Age: 38 Year
  Sex: Female
  Weight: 47 kg

DRUGS (10)
  1. PACLITAXEL. [Suspect]
     Active Substance: PACLITAXEL
     Indication: OVARIAN CANCER
     Dosage: 250 OR 252 MGLAST DOSE PRIOR TO SAE 27/DEC/2012
     Route: 042
     Dates: start: 20121004
  2. AVASTIN [Suspect]
     Active Substance: BEVACIZUMAB
     Indication: OVARIAN CANCER
     Dosage: 705 MG, UNK
     Route: 042
     Dates: start: 20121025
  3. BEVACIZUMAB. [Suspect]
     Active Substance: BEVACIZUMAB
     Indication: OVARIAN CANCER
     Dosage: 700 MG, UNK (LAST DOSE PRIOR TO SAE 27/DEC/2012)
     Route: 042
     Dates: start: 20121025
  4. PACLITAXEL. [Suspect]
     Active Substance: PACLITAXEL
     Dosage: 250 MG, UNK
     Route: 042
     Dates: start: 20130117
  5. CARBOPLATIN. [Suspect]
     Active Substance: CARBOPLATIN
     Dosage: 535 MG, UNK
     Route: 042
     Dates: start: 20121025
  6. CARBOPLATIN. [Suspect]
     Active Substance: CARBOPLATIN
     Indication: OVARIAN CANCER
     Dosage: 669 MG, UNK
     Route: 042
     Dates: start: 20121004
  7. CARBOPLATIN. [Suspect]
     Active Substance: CARBOPLATIN
     Dosage: 570 MG, UNK
     Route: 065
     Dates: start: 20121115
  8. CARBOPLATIN. [Suspect]
     Active Substance: CARBOPLATIN
     Dosage: 570 MG, UNK
     Route: 065
     Dates: start: 20130117
  9. BEVACIZUMAB. [Suspect]
     Active Substance: BEVACIZUMAB
     Dosage: 700 MG, UNK
     Route: 042
     Dates: start: 20121227
  10. AVASTIN [Suspect]
     Active Substance: BEVACIZUMAB
     Dosage: 700 MG, UNK
     Route: 042
     Dates: start: 20121227

REACTIONS (13)
  - Constipation [Recovered/Resolved]
  - Leukopenia [Recovering/Resolving]
  - Abdominal pain [Not Recovered/Not Resolved]
  - Leukopenia [Recovered/Resolved]
  - Abdominal pain [Recovered/Resolved]
  - Anaemia [Recovered/Resolved]
  - Stress [Recovered/Resolved]
  - Alopecia [Not Recovered/Not Resolved]
  - Abdominal pain [Recovered/Resolved]
  - Gastrointestinal disorder [Not Recovered/Not Resolved]
  - Nausea [Recovered/Resolved]
  - Constipation [Recovered/Resolved]
  - Abdominal pain [Recovered/Resolved]

NARRATIVE: CASE EVENT DATE: 20121004
